FAERS Safety Report 4546556-X (Version None)
Quarter: 2005Q1

REPORT INFORMATION
  Report Type: 
  Country: None (occurrence: None)
  Receive Date: 20050103
  Receipt Date: 20041220
  Transmission Date: 20050727
  Serious: Yes (Other)
  Sender: FDA-Public Use
  Company Number: 2004118885

PATIENT
  Age: 69 Year
  Sex: Male
  Weight: 90.7194 kg

DRUGS (4)
  1. CELEBREX [Suspect]
     Indication: ARTHRITIS
  2. CELEBREX [Suspect]
     Indication: OSTEOARTHRITIS
  3. ANTIHYPERTENSIVES (ANTIHYPERTENSIVES) [Concomitant]
  4. ALLOPURINOL [Concomitant]

REACTIONS (9)
  - ABDOMINAL PAIN [None]
  - CHEST WALL PAIN [None]
  - FEELING ABNORMAL [None]
  - MIDDLE INSOMNIA [None]
  - NAUSEA [None]
  - PROSTATE CANCER [None]
  - RENAL ATROPHY [None]
  - RENAL IMPAIRMENT [None]
  - SALIVARY HYPERSECRETION [None]
